FAERS Safety Report 5239240-0 (Version None)
Quarter: 2007Q1

REPORT INFORMATION
  Report Type: 
  Country: None (occurrence: None)
  Receive Date: 20061208
  Receipt Date: 20050610
  Transmission Date: 20070707
  Serious: Yes (Other)
  Sender: FDA-Public Use
  Company Number: 2005UW09035

PATIENT
  Age: 60 Year
  Sex: Female

DRUGS (3)
  1. CRESTOR [Suspect]
     Indication: HYPERTENSION
     Dosage: 10 MG QD PO
     Route: 048
     Dates: start: 20030101, end: 20030101
  2. PLAVIX [Concomitant]
  3. TOPROL-XL [Concomitant]

REACTIONS (1)
  - WEIGHT INCREASED [None]
